FAERS Safety Report 15377096 (Version 2)
Quarter: 2019Q2

REPORT INFORMATION
  Report Type: Spontaneous
  Country: US (occurrence: US)
  Receive Date: 20180913
  Receipt Date: 20190408
  Transmission Date: 20190711
  Serious: Yes (Life-Threatening, Hospitalization)
  Sender: FDA-Public Use
  Company Number: US-SUN PHARMACEUTICAL INDUSTRIES LTD-2018US-182600

PATIENT
  Age: 36 Year
  Sex: Male

DRUGS (1)
  1. OLANZAPINE. [Suspect]
     Active Substance: OLANZAPINE
     Indication: SCHIZOPHRENIA
     Dosage: UNK
     Route: 065

REACTIONS (6)
  - Diabetic ketoacidosis [Recovering/Resolving]
  - Glycosylated haemoglobin increased [Recovering/Resolving]
  - Rhabdomyolysis [Unknown]
  - Acute kidney injury [Recovering/Resolving]
  - Increased appetite [Unknown]
  - Weight increased [Unknown]
